FAERS Safety Report 20512011 (Version 1)
Quarter: 2022Q1

REPORT INFORMATION
  Report Type: Report from Study
  Country: ES (occurrence: ES)
  Receive Date: 20220224
  Receipt Date: 20220224
  Transmission Date: 20220423
  Serious: Yes (Other)
  Sender: FDA-Public Use
  Company Number: ES-GLAXOSMITHKLINE-ES2021EME231715

PATIENT
  Age: 50 Year
  Sex: Female

DRUGS (1)
  1. NIRAPARIB [Suspect]
     Active Substance: NIRAPARIB
     Indication: Ovarian neoplasm
     Dosage: UNK, QD
     Dates: start: 20210830

REACTIONS (4)
  - Pelvi-ureteric obstruction [Unknown]
  - Anaemia [Recovering/Resolving]
  - Radical cystectomy [Not Recovered/Not Resolved]
  - Renal mass [Unknown]

NARRATIVE: CASE EVENT DATE: 20210801
